FAERS Safety Report 24051003 (Version 1)
Quarter: 2024Q3

REPORT INFORMATION
  Report Type: Spontaneous
  Country: CN (occurrence: CN)
  Receive Date: 20240704
  Receipt Date: 20240704
  Transmission Date: 20241016
  Serious: Yes (Hospitalization)
  Sender: BAXTER
  Company Number: None

PATIENT
  Age: 16 Year
  Sex: Male
  Weight: 39 kg

DRUGS (12)
  1. CYCLOPHOSPHAMIDE [Suspect]
     Active Substance: CYCLOPHOSPHAMIDE
     Indication: Acute lymphocytic leukaemia
     Dosage: 1.25 G, ONE TIME IN ONE DAY, DILUTED WITH 100 ML OF 5% GLUCOSE, AS A PART OF CAML REGIMEN
     Route: 041
     Dates: start: 20240520, end: 20240520
  2. DEXTROSE [Suspect]
     Active Substance: DEXTROSE\DEXTROSE MONOHYDRATE
     Indication: Medication dilution
     Dosage: (5%) 50 ML, QD, USED TO DILUTE 1.2 G OF GLUTATHIONE
     Route: 041
     Dates: start: 20240519
  3. PEGASPARGASE [Suspect]
     Active Substance: PEGASPARGASE
     Indication: Acute lymphocytic leukaemia
     Dosage: 4.2 ML, ONE TIME IN ONE DAY, AS A PART OF CAML REGIMEN
     Route: 030
     Dates: start: 20240521, end: 20240521
  4. MERCAPTOPURINE [Suspect]
     Active Substance: MERCAPTOPURINE
     Indication: Acute lymphocytic leukaemia
     Dosage: 60 MG, ONE TIME IN ONE DAY, AS A PART OF CAML REGIMEN
     Route: 048
     Dates: start: 20240520, end: 20240606
  5. CYTARABINE [Suspect]
     Active Substance: CYTARABINE
     Indication: Acute lymphocytic leukaemia
     Dosage: 94 MG, ONE TIME IN ONE DAY, DILUTED WITH 100 ML OF 0.9% SODIUM CHLORIDE, AS A PART OF CAML REGIMEN
     Route: 041
     Dates: start: 20240522, end: 20240526
  6. CYTARABINE [Suspect]
     Active Substance: CYTARABINE
     Dosage: 94 MG, ONE TIME IN ONE DAY, DILUTED WITH 100 ML OF 0.9% SODIUM CHLORIDE, AS A PART OF CAML REGIMEN
     Route: 041
     Dates: start: 20240529, end: 20240602
  7. SODIUM CHLORIDE [Suspect]
     Active Substance: SODIUM CHLORIDE
     Indication: Medication dilution
     Dosage: 100 ML, ONE TIME IN ONE DAY, USED TO DILUTE 94 MG OF CYTARABINE
     Route: 041
     Dates: start: 20240522, end: 20240526
  8. SODIUM CHLORIDE [Suspect]
     Active Substance: SODIUM CHLORIDE
     Dosage: 100 ML, ONE TIME IN ONE DAY, USED TO DILUTE 94 MG OF CYTARABINE
     Route: 041
     Dates: start: 20240529, end: 20240602
  9. DEXTROSE [Suspect]
     Active Substance: DEXTROSE\DEXTROSE MONOHYDRATE
     Indication: Medication dilution
     Dosage: 100 ML, ONE TIME IN ONE DAY, USED TO DILUTE 1.25 G OF CYCLOPHOSPHAMIDE
     Route: 041
     Dates: start: 20240520, end: 20240520
  10. GLUCUROLACTONE [Suspect]
     Active Substance: GLUCUROLACTONE
     Indication: Prophylaxis
     Dosage: 0.1 G, TID
     Route: 048
     Dates: start: 20240519
  11. AMMONIUM GLYCYRRHIZATE\CYSTEINE HYDROCHLORIDE\GLYCINE [Suspect]
     Active Substance: AMMONIUM GLYCYRRHIZATE\CYSTEINE HYDROCHLORIDE\GLYCINE
     Indication: Prophylaxis
     Dosage: 50 MG, TID
     Route: 048
     Dates: start: 20240519
  12. GLUTATHIONE [Suspect]
     Active Substance: GLUTATHIONE
     Indication: Prophylaxis
     Dosage: 1.2 G, QD, DILUTED WITH 50 ML OF 5% GLUCOSE
     Route: 041
     Dates: start: 20240519

REACTIONS (2)
  - Hepatic function abnormal [Recovering/Resolving]
  - Transaminases increased [Recovering/Resolving]

NARRATIVE: CASE EVENT DATE: 20240608
